FAERS Safety Report 10455912 (Version 1)
Quarter: 2014Q3

REPORT INFORMATION
  Report Type: Spontaneous
  Country: US (occurrence: None)
  Receive Date: 20140912
  Receipt Date: 20140912
  Transmission Date: 20150326
  Serious: Yes (Disabling, Other)
  Sender: FDA-Public Use
  Company Number: C-14-118

PATIENT
  Sex: Male

DRUGS (3)
  1. OXYMORPHONE [Suspect]
     Active Substance: OXYMORPHONE
     Dosage: 8 TIMES IN ONE MONTH
     Route: 042
  2. OXYCODONE [Concomitant]
     Active Substance: OXYCODONE
  3. LISINOPRIL. [Concomitant]
     Active Substance: LISINOPRIL

REACTIONS (14)
  - Pyrexia [None]
  - Retinal injury [None]
  - Retinal ischaemia [None]
  - Drug abuse [None]
  - Retinal haemorrhage [None]
  - Retinal degeneration [None]
  - Incorrect route of drug administration [None]
  - Thrombocytopenia [None]
  - Drug abuser [None]
  - Wrong technique in drug usage process [None]
  - Anaemia [None]
  - Visual acuity reduced [None]
  - Chills [None]
  - Retinal neovascularisation [None]
